FAERS Safety Report 7281903-X (Version None)
Quarter: 2011Q1

REPORT INFORMATION
  Report Type: 
  Country: None (occurrence: None)
  Receive Date: 20110128
  Receipt Date: 20110117
  Transmission Date: 20110831
  Serious: Yes (Other)
  Sender: FDA-Public Use
  Company Number: 803466

PATIENT
  Age: 63 Year
  Sex: Female
  Weight: 55 kg

DRUGS (4)
  1. OXALIPLATIN [Suspect]
     Indication: CHEMOTHERAPY
     Dosage: 125ML/HR, PORT, OTHER
     Route: 050
     Dates: start: 20101227, end: 20101227
  2. OXALIPLATIN [Suspect]
     Indication: CHEMOTHERAPY
     Dosage: 125ML/HR, PORT, OTHER
     Route: 050
     Dates: start: 20101227, end: 20101227
  3. OXALIPLATIN [Suspect]
     Indication: CHEMOTHERAPY
     Dosage: 125ML./HR, PORT, OTHER
     Route: 047
     Dates: start: 20101227, end: 20101227
  4. OXALIPLATIN [Suspect]
     Indication: CHEMOTHERAPY
     Dosage: 125ML./HR, PORT, OTHER
     Route: 047
     Dates: start: 20101227, end: 20101227

REACTIONS (3)
  - FEELING ABNORMAL [None]
  - DRY THROAT [None]
  - WHEEZING [None]
